FAERS Safety Report 4328033-4 (Version None)
Quarter: 2004Q1

REPORT INFORMATION
  Report Type: 
  Country: None (occurrence: None)
  Receive Date: 20040325
  Receipt Date: 20040312
  Transmission Date: 20041129
  Serious: Yes (Other)
  Sender: FDA-Public Use
  Company Number: US-JNJFOC-20040303217

PATIENT
  Age: 49 Year
  Sex: Female

DRUGS (11)
  1. INFLIXIMAB (INFLIXIMAB, RECOMBINANT) LYOPHILIZED POWDER [Suspect]
     Indication: RHEUMATOID ARTHRITIS
     Dosage: INTRAVENOUS
     Route: 042
     Dates: start: 20020509, end: 20020509
  2. INFLIXIMAB (INFLIXIMAB, RECOMBINANT) LYOPHILIZED POWDER [Suspect]
     Indication: RHEUMATOID ARTHRITIS
     Dosage: INTRAVENOUS
     Route: 042
     Dates: start: 20030101, end: 20030101
  3. METHOTREXATE [Concomitant]
  4. FOLIC ACID [Concomitant]
  5. PAXIL [Concomitant]
  6. SINGULAIR [Concomitant]
  7. SOMA [Concomitant]
  8. PROTONIX [Concomitant]
  9. PULMACORT (BUDESONIDE) [Concomitant]
  10. XOPENEX [Concomitant]
  11. MULTIVITAMIN (MULTIVITAMINS) [Concomitant]

REACTIONS (1)
  - LUPUS-LIKE SYNDROME [None]
